FAERS Safety Report 15324817 (Version 1)
Quarter: 2018Q3

REPORT INFORMATION
  Report Type: Spontaneous
  Country: JP (occurrence: JP)
  Receive Date: 20180828
  Receipt Date: 20180828
  Transmission Date: 20181010
  Serious: Yes (Other)
  Sender: FDA-Public Use
  Company Number: JP-BAUSCH-BL-2018-023485

PATIENT
  Age: 33 Year
  Sex: Male

DRUGS (6)
  1. DICLOFENAC [Suspect]
     Active Substance: DICLOFENAC
     Indication: PYREXIA
     Route: 065
  2. DICLOFENAC [Suspect]
     Active Substance: DICLOFENAC
     Indication: FATIGUE
  3. L?CARBOCISTEINE [Concomitant]
     Active Substance: CARBOCYSTEINE
     Indication: RHINORRHOEA
  4. L?CARBOCISTEINE [Concomitant]
     Active Substance: CARBOCYSTEINE
     Indication: PYREXIA
     Route: 065
  5. DICLOFENAC [Suspect]
     Active Substance: DICLOFENAC
     Indication: RHINORRHOEA
  6. L?CARBOCISTEINE [Concomitant]
     Active Substance: CARBOCYSTEINE
     Indication: FATIGUE

REACTIONS (1)
  - Stevens-Johnson syndrome [Recovered/Resolved]
